FAERS Safety Report 22033928 (Version 1)
Quarter: 2023Q1

REPORT INFORMATION
  Report Type: Spontaneous
  Country: US (occurrence: US)
  Receive Date: 20230224
  Receipt Date: 20230224
  Transmission Date: 20230418
  Serious: Yes (Other)
  Sender: FDA-Public Use
  Company Number: US-TEVA-2023-US-2857479

PATIENT
  Age: 72 Year
  Sex: Female

DRUGS (1)
  1. SOTALOL HYDROCHLORIDE [Suspect]
     Active Substance: SOTALOL HYDROCHLORIDE
     Indication: Ventricular tachycardia
     Dosage: 40 MILLIGRAM DAILY;
     Route: 065

REACTIONS (3)
  - Pericarditis [Unknown]
  - Concussion [Unknown]
  - Reaction to colouring [Unknown]
